FAERS Safety Report 8852818 (Version 1)
Quarter: 2012Q4

REPORT INFORMATION
  Report Type: Report from Study
  Country: JP (occurrence: JP)
  Receive Date: 20121022
  Receipt Date: 20121022
  Transmission Date: 20130627
  Serious: Yes (Other)
  Sender: FDA-Public Use
  Company Number: PHHY2012JP075136

PATIENT
  Age: 61 Year
  Sex: Female
  Weight: 84 kg

DRUGS (5)
  1. VALSARTAN, AMLODIPINE [Suspect]
     Indication: HYPERTENSION
     Dosage: 1 DF, daily
     Route: 048
     Dates: start: 20101216, end: 20110926
  2. NATRIX [Suspect]
     Indication: HYPERTENSION
     Dosage: 1 mg, daily
     Route: 048
  3. LIVALO KOWA [Concomitant]
     Indication: DYSLIPIDAEMIA
     Dosage: 1 mg, UNK
     Route: 048
  4. ACTOS [Concomitant]
     Indication: DIABETES MELLITUS
     Dosage: 15 mg, UNK
     Route: 048
  5. GLIMEPIRIDE [Concomitant]
     Indication: DIABETES MELLITUS
     Dosage: 1 mg, UNK
     Route: 048

REACTIONS (1)
  - Hypokalaemia [Unknown]
